FAERS Safety Report 7107340 (Version 2)
Quarter: 2019Q2

REPORT INFORMATION
  Report Type: Report from Study
  Country: US (occurrence: US)
  Receive Date: 20090908
  Receipt Date: 20190402
  Transmission Date: 20190711
  Serious: Yes (Other)
  Sender: FDA-Public Use
  Company Number: US-PFIZER INC-2008063387

PATIENT
  Sex: Male

DRUGS (1)
  1. CHANTIX [Suspect]
     Active Substance: VARENICLINE TARTRATE
     Dosage: UNK

REACTIONS (5)
  - Depression [Unknown]
  - Abnormal dreams [Unknown]
  - Neoplasm malignant [Unknown]
  - Drug ineffective [Unknown]
  - Hallucination [Unknown]
